FAERS Safety Report 15134720 (Version 1)
Quarter: 2018Q3

REPORT INFORMATION
  Report Type: Spontaneous
  Country: IT (occurrence: IT)
  Receive Date: 20180712
  Receipt Date: 20180712
  Transmission Date: 20181010
  Serious: Yes (Hospitalization)
  Sender: FDA-Public Use
  Company Number: IT-ASTRAZENECA-2018SE86836

PATIENT
  Age: 36 Year
  Sex: Female

DRUGS (3)
  1. GABAPENTIN. [Suspect]
     Active Substance: GABAPENTIN
     Dosage: 2.0G ONCE/SINGLE ADMINISTRATION
     Route: 048
     Dates: start: 20180211, end: 20180211
  2. SEROQUEL [Suspect]
     Active Substance: QUETIAPINE FUMARATE
     Dosage: 12.0DF ONCE/SINGLE ADMINISTRATION
     Route: 048
     Dates: start: 20180211, end: 20180211
  3. NOZINAN [Suspect]
     Active Substance: LEVOMEPROMAZINE
     Dosage: 400.0MG ONCE/SINGLE ADMINISTRATION
     Route: 048
     Dates: start: 20180211, end: 20180211

REACTIONS (3)
  - Coma [Unknown]
  - Somnolence [Unknown]
  - Intentional overdose [Unknown]

NARRATIVE: CASE EVENT DATE: 20180211
